FAERS Safety Report 6629618-2 (Version None)
Quarter: 2010Q1

REPORT INFORMATION
  Report Type: 
  Country: None (occurrence: None)
  Receive Date: 20100311
  Receipt Date: 20100226
  Transmission Date: 20100710
  Serious: Yes (Hospitalization, Other)
  Sender: FDA-Public Use
  Company Number: US-ELI_LILLY_AND_COMPANY-US201003001177

PATIENT
  Sex: Female

DRUGS (2)
  1. FORTEO [Suspect]
     Indication: OSTEOPOROSIS
     Dosage: 20 UG, DAILY (1/D)
  2. VITAMINS NOS [Concomitant]

REACTIONS (6)
  - DIARRHOEA [None]
  - GALLBLADDER OPERATION [None]
  - HEPATITIS [None]
  - PANCREATIC ENZYMES INCREASED [None]
  - PANCREATITIS [None]
  - VOMITING [None]
